FAERS Safety Report 13551282 (Version 2)
Quarter: 2020Q1

REPORT INFORMATION
  Report Type: Spontaneous
  Country: NL (occurrence: NL)
  Receive Date: 20170516
  Receipt Date: 20200205
  Transmission Date: 20200409
  Serious: Yes (Hospitalization, Disabling)
  Sender: FDA-Public Use
  Company Number: NL-TEVA-526903ISR

PATIENT
  Age: 45 Year
  Sex: Female
  Weight: 58 kg

DRUGS (5)
  1. VITAMIN B6 [Suspect]
     Active Substance: PYRIDOXINE HYDROCHLORIDE
     Indication: PROPHYLAXIS
     Dosage: FOR YEARS 20 MG VIA MULTI. AFTER THAT 35 WITH EXTRA INTAKE
     Route: 048
     Dates: start: 2010, end: 20140912
  2. STRESS B-COMPLEX MET 5 MG B6 [Suspect]
     Active Substance: VITAMINS
     Dosage: 1 OR 2 A DAY
     Route: 048
     Dates: start: 201401, end: 20140912
  3. MAGNESIUMCITRAAT MET B6 ERIN [Suspect]
     Active Substance: MAGNESIUM CITRATE\PYRIDOXINE
     Dosage: 2 DOSAGE FORMS DAILY; TWICE DAILY ONE PIECE
     Route: 048
     Dates: start: 201401, end: 20140912
  4. CHLORELLA [Concomitant]
     Active Substance: DIETARY SUPPLEMENT
     Dosage: 5G A DAY
     Route: 048
     Dates: start: 201401, end: 20140912
  5. SPIRULINA [Concomitant]
     Active Substance: SPIRULINA
     Dosage: ONE TEASPOON A DAY
     Route: 048
     Dates: start: 201401, end: 20140913

REACTIONS (1)
  - Neuropathy peripheral [Recovered/Resolved]

NARRATIVE: CASE EVENT DATE: 201405
